FAERS Safety Report 10189102 (Version 1)
Quarter: 2014Q2

REPORT INFORMATION
  Report Type: Report from Study
  Country: US (occurrence: US)
  Receive Date: 20140522
  Receipt Date: 20140522
  Transmission Date: 20141212
  Serious: Yes (Hospitalization)
  Sender: FDA-Public Use
  Company Number: US-JNJFOC-20140513467

PATIENT
  Age: 91 Year
  Sex: Male
  Weight: 72 kg

DRUGS (11)
  1. IMBRUVICA [Suspect]
     Indication: CHRONIC LYMPHOCYTIC LEUKAEMIA
     Route: 048
     Dates: start: 20140514
  2. IMBRUVICA [Suspect]
     Indication: CHRONIC LYMPHOCYTIC LEUKAEMIA
     Route: 048
     Dates: start: 201404, end: 2014
  3. IMBRUVICA [Suspect]
     Indication: CHRONIC LYMPHOCYTIC LEUKAEMIA
     Route: 048
     Dates: start: 2014, end: 20140513
  4. ASPIRIN [Concomitant]
     Indication: CARDIAC DISORDER
     Route: 048
  5. DOCUSATE SODIUM [Concomitant]
     Indication: FAECES HARD
     Route: 048
     Dates: start: 2009
  6. VITAMIN D3 [Concomitant]
     Indication: NUTRITIONAL SUPPLEMENTATION
     Route: 048
  7. OCUVITE (VITAMIN COMBINATIONS) [Concomitant]
     Indication: RETINAL DISORDER
     Route: 048
     Dates: start: 2012
  8. LYSINE [Concomitant]
     Indication: IMMUNE SYSTEM DISORDER
     Route: 048
  9. LISINOPRIL [Concomitant]
     Indication: HYPERTENSION
     Route: 048
     Dates: start: 2008
  10. TERAZOSIN [Concomitant]
     Indication: PROSTATIC DISORDER
     Route: 048
     Dates: start: 2006
  11. CALCIUM AND VITAMIN D [Concomitant]
     Indication: NUTRITIONAL SUPPLEMENTATION
     Route: 048

REACTIONS (5)
  - Atrial fibrillation [Unknown]
  - Cardiac failure [Unknown]
  - Nausea [Recovering/Resolving]
  - Fatigue [Recovering/Resolving]
  - Asthenia [Recovering/Resolving]
